FAERS Safety Report 6318788-1 (Version None)
Quarter: 2009Q3

REPORT INFORMATION
  Report Type: 
  Country: None (occurrence: None)
  Receive Date: 20090821
  Receipt Date: 20090813
  Transmission Date: 20100115
  Serious: Yes (Hospitalization, Other)
  Sender: FDA-Public Use
  Company Number: US-ABBOTT-09P-163-0565782-00

PATIENT
  Sex: Male
  Weight: 107.14 kg

DRUGS (9)
  1. HUMIRA [Suspect]
     Indication: CROHN'S DISEASE
     Route: 058
     Dates: start: 20081001
  2. HUMIRA [Suspect]
     Route: 058
     Dates: start: 20090201, end: 20090601
  3. GEODON [Concomitant]
     Indication: SCHIZOPHRENIA
  4. CLONAZEPAM [Concomitant]
     Indication: ANXIETY
  5. RIALDA [Concomitant]
     Indication: CROHN'S DISEASE
  6. AZASAN [Concomitant]
     Indication: CROHN'S DISEASE
  7. ZOLPIDEN [Concomitant]
     Indication: INSOMNIA
  8. ALLEGRA [Concomitant]
     Indication: HYPERSENSITIVITY
  9. TRAZODONE HCL [Concomitant]
     Indication: ANXIETY
     Route: 048

REACTIONS (10)
  - ACCIDENTAL NEEDLE STICK [None]
  - CHEST PAIN [None]
  - CHILLS [None]
  - CROHN'S DISEASE [None]
  - INCORRECT DRUG ADMINISTRATION DURATION [None]
  - INTESTINAL OBSTRUCTION [None]
  - NAUSEA [None]
  - PYREXIA [None]
  - SCAR [None]
  - WEIGHT DECREASED [None]
